FAERS Safety Report 6958513-4 (Version None)
Quarter: 2010Q3

REPORT INFORMATION
  Report Type: 
  Country: None (occurrence: None)
  Receive Date: 20100831
  Receipt Date: 20100823
  Transmission Date: 20110219
  Serious: No
  Sender: FDA-Public Use
  Company Number: CA-US-EMD SERONO, INC.-230325K09CAN

PATIENT
  Sex: Male

DRUGS (5)
  1. REBIF [Suspect]
     Indication: RELAPSING-REMITTING MULTIPLE SCLEROSIS
     Dates: start: 19990615
  2. PILLS TO CONTROL BLADDER [Concomitant]
     Indication: BLADDER SPASM
  3. MUSCLE RELAXANT [Concomitant]
  4. PAIN KILLERS [Concomitant]
     Indication: PAIN
  5. TYLENOL-500 [Concomitant]

REACTIONS (8)
  - ASTHENIA [None]
  - CATHETER PLACEMENT [None]
  - DEPRESSION [None]
  - DIABETES MELLITUS [None]
  - FATIGUE [None]
  - HYPERTENSION [None]
  - STRESS [None]
  - WEIGHT INCREASED [None]
